FAERS Safety Report 7984626-4 (Version None)
Quarter: 2011Q4

REPORT INFORMATION
  Report Type: 
  Country: None (occurrence: None)
  Receive Date: 20111216
  Receipt Date: 20111208
  Transmission Date: 20120403
  Serious: Yes (Disabling)
  Sender: FDA-Public Use
  Company Number: GB-AMGEN-GBRSP2011066279

PATIENT
  Age: 63 Year
  Sex: Female

DRUGS (3)
  1. FUROSEMIDE [Concomitant]
     Dosage: 40 MG, UNK
     Route: 048
  2. ENBREL [Suspect]
     Indication: ANKYLOSING SPONDYLITIS
     Dosage: 50 MG, WEEKLY, ONCE A WEEK
     Route: 058
     Dates: start: 20100301, end: 20101001
  3. ALLOPURINOL [Concomitant]
     Dosage: UNK
     Route: 048
     Dates: start: 20110601

REACTIONS (2)
  - PULMONARY HYPERTENSION [None]
  - DYSPNOEA [None]
